FAERS Safety Report 5201177-0 (Version None)
Quarter: 2007Q1

REPORT INFORMATION
  Report Type: 
  Country: None (occurrence: None)
  Receive Date: 20070108
  Receipt Date: 20070104
  Transmission Date: 20070707
  Serious: Yes (Other)
  Sender: FDA-Public Use
  Company Number: 2007UW00223

PATIENT
  Age: 80 Year
  Sex: Female
  Weight: 55.8 kg

DRUGS (4)
  1. TAMOXIFEN CITRATE [Suspect]
     Indication: BREAST CANCER
     Route: 048
     Dates: start: 19950201, end: 20050501
  2. PREVACID [Concomitant]
  3. DETROL [Concomitant]
  4. VIOXX [Concomitant]

REACTIONS (2)
  - BIOPSY STOMACH [None]
  - HYPERTENSION [None]
